FAERS Safety Report 4973331-4 (Version None)
Quarter: 2006Q2

REPORT INFORMATION
  Report Type: 
  Country: None (occurrence: None)
  Receive Date: 20060414
  Receipt Date: 20050930
  Transmission Date: 20061013
  Serious: Yes (Hospitalization)
  Sender: FDA-Public Use
  Company Number: US-MERCK-0510USA02112

PATIENT
  Age: 43 Year
  Sex: Female
  Weight: 100 kg

DRUGS (6)
  1. VIOXX [Suspect]
     Indication: ARTHRITIS
     Route: 048
     Dates: start: 20020326, end: 20030716
  2. TYLENOL (CAPLET) [Concomitant]
     Route: 065
  3. GLUCOPHAGE [Concomitant]
     Route: 048
  4. ACIPHEX [Concomitant]
     Route: 065
  5. HUMULIN [Concomitant]
     Route: 065
  6. TOPROL-XL [Concomitant]
     Route: 048

REACTIONS (11)
  - ACUTE MYOCARDIAL INFARCTION [None]
  - ATRIOVENTRICULAR BLOCK COMPLETE [None]
  - BRADYCARDIA [None]
  - CHEST PAIN [None]
  - CORONARY ARTERY DISEASE [None]
  - DYSPNOEA [None]
  - HEART RATE IRREGULAR [None]
  - HYPERKALAEMIA [None]
  - HYPERKERATOSIS [None]
  - PALPITATIONS [None]
  - VENTRICULAR EXTRASYSTOLES [None]
